FAERS Safety Report 4776003-4 (Version None)
Quarter: 2005Q3

REPORT INFORMATION
  Report Type: 
  Country: None (occurrence: None)
  Receive Date: 20050922
  Receipt Date: 20050802
  Transmission Date: 20060218
  Serious: Yes (Other)
  Sender: FDA-Public Use
  Company Number: US-ROCHE-413026

PATIENT
  Age: 57 Year
  Sex: Male
  Weight: 55.3 kg

DRUGS (3)
  1. PEGASYS [Suspect]
     Indication: HEPATITIS C POSITIVE
     Route: 058
     Dates: start: 20050529, end: 20050729
  2. PEGASYS [Suspect]
     Route: 058
  3. COPEGUS [Suspect]
     Indication: HEPATITIS C POSITIVE
     Route: 048
     Dates: start: 20050529, end: 20050729

REACTIONS (1)
  - PERICARDITIS [None]
